FAERS Safety Report 6261776-4 (Version None)
Quarter: 2009Q3

REPORT INFORMATION
  Report Type: 
  Country: None (occurrence: None)
  Receive Date: 20090709
  Receipt Date: 20090629
  Transmission Date: 20100115
  Serious: Yes (Other)
  Sender: FDA-Public Use
  Company Number: FI-ELI_LILLY_AND_COMPANY-FI200906006928

PATIENT
  Sex: Male

DRUGS (4)
  1. ZYPREXA [Suspect]
     Indication: PSYCHOTIC DISORDER
     Dosage: 10 MG, UNK
     Route: 048
     Dates: start: 20090510, end: 20090511
  2. LEVOZIN [Concomitant]
     Indication: PSYCHOTIC DISORDER
     Dosage: 50 MG, UNK
     Route: 048
     Dates: start: 20090510, end: 20090510
  3. LEVOZIN [Concomitant]
     Dosage: 100 MG, EACH EVENING
     Route: 048
     Dates: start: 20090501
  4. TEMESTA [Concomitant]
     Indication: CATATONIA
     Dosage: 1 MG, 3/D
     Dates: start: 20090510

REACTIONS (4)
  - LEUKOCYTOSIS [None]
  - LOSS OF CONSCIOUSNESS [None]
  - PYREXIA [None]
  - TACHYCARDIA [None]
